FAERS Safety Report 8530334-0 (Version None)
Quarter: 2012Q3

REPORT INFORMATION
  Report Type: 
  Country: None (occurrence: None)
  Receive Date: 20120723
  Receipt Date: 20120719
  Transmission Date: 20120928
  Serious: No
  Sender: FDA-Public Use
  Company Number: US-PFIZER INC-2012175768

PATIENT
  Sex: Male
  Weight: 109 kg

DRUGS (7)
  1. HYDROCHLOROTHIAZIDE [Concomitant]
     Indication: HYPERTENSION
     Dosage: 3.75 MG, DAILY
  2. GEODON [Suspect]
     Indication: BIPOLAR DISORDER
     Dosage: 60 MG, DAILY
     Dates: start: 20110101
  3. PREVACID [Concomitant]
     Indication: GASTRIC DISORDER
     Dosage: 30 MG, 2X/DAY
  4. TEKTURNA [Concomitant]
     Indication: HYPERTENSION
     Dosage: UNK
  5. TESTIM [Concomitant]
     Indication: ANDROGEN DEFICIENCY
     Dosage: UNK
  6. SIMVASTATIN [Concomitant]
     Indication: BLOOD CHOLESTEROL INCREASED
     Dosage: 20 MG, DAILY
  7. METOPROLOL [Concomitant]
     Indication: HYPERTENSION
     Dosage: 50 MG, DAILY

REACTIONS (5)
  - ANXIETY [None]
  - HYPERHIDROSIS [None]
  - HOT FLUSH [None]
  - FEELING COLD [None]
  - PARAESTHESIA [None]
